FAERS Safety Report 5720581-5 (Version None)
Quarter: 2008Q2

REPORT INFORMATION
  Report Type: 
  Country: None (occurrence: None)
  Receive Date: 20080429
  Receipt Date: 20080422
  Transmission Date: 20081010
  Serious: Yes (Other)
  Sender: FDA-Public Use
  Company Number: US-BAYER-200812423NA

PATIENT
  Age: 35 Year
  Sex: Female
  Weight: 69 kg

DRUGS (1)
  1. MIRENA [Suspect]
     Indication: CONTRACEPTION
     Route: 015
     Dates: start: 20050927, end: 20071011

REACTIONS (5)
  - AMENORRHOEA [None]
  - DIARRHOEA [None]
  - IUD MIGRATION [None]
  - PELVIC PAIN [None]
  - WEIGHT DECREASED [None]
